FAERS Safety Report 9405750 (Version 1)
Quarter: 2013Q3

REPORT INFORMATION
  Report Type: Spontaneous
  Country: US (occurrence: US)
  Receive Date: 20130717
  Receipt Date: 20130717
  Transmission Date: 20140515
  Serious: Yes (Hospitalization)
  Sender: FDA-Public Use
  Company Number: US-GLAXOSMITHKLINE-A0806152A

PATIENT
  Age: 58 Year
  Sex: Female

DRUGS (10)
  1. AVANDIA [Suspect]
     Indication: DIABETES MELLITUS
     Dosage: 4MG PER DAY
     Route: 048
  2. GLIPIZIDE [Concomitant]
  3. AVAPRO [Concomitant]
  4. CELEXA [Concomitant]
  5. DOXEPIN [Concomitant]
  6. ZYRTEC [Concomitant]
  7. ULTRACET [Concomitant]
  8. SKELAXIN [Concomitant]
  9. XALATAN [Concomitant]
  10. ZETIA [Concomitant]

REACTIONS (2)
  - Cardiac failure congestive [Not Recovered/Not Resolved]
  - Cerebrovascular accident [Unknown]
